FAERS Safety Report 21735554 (Version 2)
Quarter: 2023Q1

REPORT INFORMATION
  Report Type: Spontaneous
  Country: JP (occurrence: JP)
  Receive Date: 20221215
  Receipt Date: 20230215
  Transmission Date: 20230417
  Serious: Yes (Death, Hospitalization, Other)
  Sender: FDA-Public Use
  Company Number: JP-ONO-2022JP033668

PATIENT
  Age: 71 Year
  Sex: Male

DRUGS (7)
  1. OPDIVO [Suspect]
     Active Substance: NIVOLUMAB
     Indication: Oesophageal carcinoma
     Route: 042
     Dates: start: 20220916, end: 20220930
  2. FLUOROURACIL [Suspect]
     Active Substance: FLUOROURACIL
     Indication: Oesophageal carcinoma
     Dates: start: 20220509, end: 20220516
  3. FLUOROURACIL [Suspect]
     Active Substance: FLUOROURACIL
     Dates: start: 20220606, end: 20220613
  4. FLUOROURACIL [Suspect]
     Active Substance: FLUOROURACIL
     Dates: start: 20220809, end: 20220816
  5. CISPLATIN [Suspect]
     Active Substance: CISPLATIN
     Indication: Oesophageal carcinoma
     Dates: start: 20220509, end: 20220516
  6. CISPLATIN [Suspect]
     Active Substance: CISPLATIN
     Dates: start: 20220606, end: 20220613
  7. CISPLATIN [Suspect]
     Active Substance: CISPLATIN
     Dates: start: 20220809, end: 20220816

REACTIONS (5)
  - Hypothyroidism [Unknown]
  - Interstitial lung disease [Recovering/Resolving]
  - Adrenal insufficiency [Unknown]
  - Dyspnoea [Unknown]
  - Malignant neoplasm progression [Fatal]

NARRATIVE: CASE EVENT DATE: 20221101
